FAERS Safety Report 12101797 (Version 2)
Quarter: 2016Q1

REPORT INFORMATION
  Report Type: Spontaneous
  Country: US (occurrence: US)
  Receive Date: 20160222
  Receipt Date: 20160331
  Transmission Date: 20160526
  Serious: Yes (Hospitalization, Other)
  Sender: FDA-Public Use
  Company Number: US-TEVA-632282USA

PATIENT
  Sex: Female

DRUGS (1)
  1. COPAXONE [Suspect]
     Active Substance: GLATIRAMER ACETATE
     Route: 058

REACTIONS (20)
  - Fatigue [Recovered/Resolved]
  - Multiple sclerosis [Recovered/Resolved]
  - Fall [Recovering/Resolving]
  - Immune system disorder [Recovered/Resolved]
  - Wound infection staphylococcal [Unknown]
  - Pyrexia [Recovered/Resolved]
  - Sepsis [Recovered/Resolved]
  - Injection site warmth [Recovered/Resolved]
  - Injection site necrosis [Recovered/Resolved]
  - Crohn^s disease [Unknown]
  - Incontinence [Recovering/Resolving]
  - Injection site reaction [Recovered/Resolved]
  - Haemorrhage [Recovered/Resolved]
  - Injection site abscess [Recovering/Resolving]
  - Osteoporosis [Unknown]
  - Injection site pustule [Recovered/Resolved]
  - Wound dehiscence [Recovered/Resolved]
  - Wound [Recovering/Resolving]
  - Injection site swelling [Recovered/Resolved]
  - Injection site pain [Recovered/Resolved]
